FAERS Safety Report 6612244-9 (Version None)
Quarter: 2010Q1

REPORT INFORMATION
  Report Type: 
  Country: None (occurrence: None)
  Receive Date: 20100225
  Receipt Date: 20100212
  Transmission Date: 20100710
  Serious: Yes (Death)
  Sender: FDA-Public Use
  Company Number: 100218-0000212

PATIENT
  Age: 28 Year
  Sex: Female

DRUGS (7)
  1. NEOPROFEN [Suspect]
     Indication: DRUG USE FOR UNKNOWN INDICATION
  2. CARISOPRODOL [Suspect]
  3. OPIOID [Suspect]
     Indication: DRUG USE FOR UNKNOWN INDICATION
  4. ACYCLOVIR [Suspect]
     Indication: DRUG USE FOR UNKNOWN INDICATION
  5. AZITHROMYCIN [Suspect]
     Indication: DRUG USE FOR UNKNOWN INDICATION
  6. METRONIDAZOLE [Suspect]
     Indication: DRUG USE FOR UNKNOWN INDICATION
  7. GUAIFENESIN AND PSEUDOEPHEDRINE HYDROCHLORIDE [Suspect]
     Indication: DRUG USE FOR UNKNOWN INDICATION

REACTIONS (1)
  - DEATH [None]
